FAERS Safety Report 9844387 (Version 1)
Quarter: 2014Q1

REPORT INFORMATION
  Report Type: Spontaneous
  Country: FR (occurrence: None)
  Receive Date: 20140123
  Receipt Date: 20140123
  Transmission Date: 20141002
  Serious: Yes (Other)
  Sender: FDA-Public Use
  Company Number: FR-ZYDUS-002473

PATIENT
  Age: 46 Year
  Sex: Male

DRUGS (1)
  1. TRAMADOL (TRAMADOL) [Suspect]
     Indication: FACIAL NEURALGIA

REACTIONS (6)
  - Inappropriate antidiuretic hormone secretion [None]
  - Hypoglycaemia [None]
  - Hyponatraemia [None]
  - Altered state of consciousness [None]
  - Convulsion [None]
  - Gastrointestinal disorder [None]
